FAERS Safety Report 5109616-0 (Version None)
Quarter: 2006Q3

REPORT INFORMATION
  Report Type: 
  Country: None (occurrence: None)
  Receive Date: 20060918
  Receipt Date: 20060904
  Transmission Date: 20061208
  Serious: Yes (Death, Other)
  Sender: FDA-Public Use
  Company Number: JP200607001706

PATIENT
  Age: 71 Year
  Sex: Male

DRUGS (2)
  1. GEMZAR [Suspect]
     Indication: LUNG ADENOCARCINOMA STAGE III
     Dosage: 1500 MG, OTHER, INTRAVENOUS
     Route: 042
     Dates: start: 20030801
  2. PARAPLATIN [Concomitant]

REACTIONS (8)
  - BONE MARROW FAILURE [None]
  - DECREASED APPETITE [None]
  - DISSEMINATED INTRAVASCULAR COAGULATION [None]
  - GAIT DISTURBANCE [None]
  - HEPATIC FAILURE [None]
  - LYMPHADENOPATHY [None]
  - NAUSEA [None]
  - PAIN [None]
